FAERS Safety Report 14581686 (Version 1)
Quarter: 2018Q1

REPORT INFORMATION
  Report Type: Spontaneous
  Country: FR (occurrence: FR)
  Receive Date: 20180228
  Receipt Date: 20180228
  Transmission Date: 20180509
  Serious: Yes (Hospitalization)
  Sender: FDA-Public Use
  Company Number: FR-TEVA-2018-FR-860406

PATIENT
  Age: 91 Year
  Sex: Female

DRUGS (3)
  1. TRAMADOL BASE [Suspect]
     Active Substance: TRAMADOL
     Indication: POISONING DELIBERATE
     Route: 048
     Dates: start: 20171208, end: 20171208
  2. LYRICA [Suspect]
     Active Substance: PREGABALIN
     Dosage: NOT SPECIFIED
     Route: 048
  3. LAMALINE [Suspect]
     Active Substance: ACETAMINOPHEN\CAFFEINE\OPIUM
     Dosage: NOT SPECIFIED
     Route: 048

REACTIONS (2)
  - Pneumonia aspiration [Recovering/Resolving]
  - Somnolence [Recovering/Resolving]

NARRATIVE: CASE EVENT DATE: 20171208
